FAERS Safety Report 22345378 (Version 1)
Quarter: 2023Q2

REPORT INFORMATION
  Report Type: Spontaneous
  Country: GB (occurrence: GB)
  Receive Date: 20230519
  Receipt Date: 20230519
  Transmission Date: 20230721
  Serious: Yes (Other)
  Sender: FDA-Public Use
  Company Number: None

PATIENT
  Sex: Female

DRUGS (1)
  1. DOXYCYCLINE [Suspect]
     Active Substance: DOXYCYCLINE
     Indication: Chronic obstructive pulmonary disease
     Dosage: UNK
     Dates: start: 20230505

REACTIONS (4)
  - Headache [Unknown]
  - Oropharyngeal pain [Unknown]
  - Nausea [Unknown]
  - Off label use [Unknown]
